FAERS Safety Report 9636711 (Version 3)
Quarter: 2013Q4

REPORT INFORMATION
  Report Type: Spontaneous
  Country: US (occurrence: US)
  Receive Date: 20131021
  Receipt Date: 20131111
  Transmission Date: 20140711
  Serious: Yes (Death, Other)
  Sender: FDA-Public Use
  Company Number: US-AMGEN-USASP2013073366

PATIENT
  Age: 76 Year
  Sex: Female

DRUGS (1)
  1. PROLIA [Suspect]
     Indication: OSTEOPOROSIS POSTMENOPAUSAL
     Dosage: 60 MG, UNK
     Route: 065

REACTIONS (5)
  - Pneumonia [Fatal]
  - Pulmonary embolism [Unknown]
  - Chronic obstructive pulmonary disease [Unknown]
  - Neurodegenerative disorder [Unknown]
  - Fracture [Unknown]
